FAERS Safety Report 4727422-3 (Version None)
Quarter: 2005Q3

REPORT INFORMATION
  Report Type: 
  Country: None (occurrence: None)
  Receive Date: 20050725
  Receipt Date: 20050725
  Transmission Date: 20060218
  Serious: No
  Sender: FDA-Public Use
  Company Number: None

PATIENT
  Age: 45 Year
  Sex: Male

DRUGS (2)
  1. ALTOPREV [Suspect]
     Indication: HYPERLIPIDAEMIA
     Dosage: 40MG   ORAL
     Route: 048
     Dates: start: 20050616, end: 20050715
  2. PRILOSEC [Concomitant]

REACTIONS (1)
  - NOCTURIA [None]
